FAERS Safety Report 9473846 (Version 2)
Quarter: 2013Q3

REPORT INFORMATION
  Report Type: Spontaneous
  Country: US (occurrence: US)
  Receive Date: 20130823
  Receipt Date: 20130823
  Transmission Date: 20140515
  Serious: No
  Sender: FDA-Public Use
  Company Number: US-BRISTOL-MYERS SQUIBB COMPANY-17047333

PATIENT
  Age: 44 Year
  Sex: Male

DRUGS (6)
  1. SPRYCEL [Suspect]
     Indication: CHRONIC MYELOID LEUKAEMIA
     Route: 048
     Dates: start: 20121004
  2. TRICOR [Concomitant]
  3. OMNICEF [Concomitant]
  4. OXYCODONE [Concomitant]
  5. METRONIDAZOLE [Concomitant]
     Route: 061
  6. LISINOPRIL [Concomitant]

REACTIONS (2)
  - Pain in extremity [Unknown]
  - Fatigue [Unknown]
